FAERS Safety Report 6709122-3 (Version None)
Quarter: 2010Q2

REPORT INFORMATION
  Report Type: 
  Country: None (occurrence: None)
  Receive Date: 20100503
  Receipt Date: 20100503
  Transmission Date: 20101027
  Serious: Yes (Hospitalization)
  Sender: FDA-Public Use
  Company Number: None

PATIENT
  Age: 81 Year
  Sex: Male
  Weight: 92.9 kg

DRUGS (1)
  1. FUROSEMIDE [Suspect]
     Indication: HYPERTENSION
     Dosage: 40 MG BID PO
     Route: 048
     Dates: start: 20081108

REACTIONS (1)
  - SYNCOPE [None]
